FAERS Safety Report 8449201-6 (Version None)
Quarter: 2012Q2

REPORT INFORMATION
  Report Type: 
  Country: None (occurrence: None)
  Receive Date: 20120619
  Receipt Date: 20120611
  Transmission Date: 20120825
  Serious: Yes (Hospitalization)
  Sender: FDA-Public Use
  Company Number: JP-B.I. PHARMACEUTICALS,INC./RIDGEFIELD-2012-BP-12814NB

PATIENT
  Age: 83 Year
  Sex: Female

DRUGS (5)
  1. DIGOXIN [Concomitant]
     Dosage: 0.125 MG
     Route: 048
  2. AMLODIPINE [Concomitant]
     Dosage: 5 MG
     Route: 048
  3. LOSARTAN POTASSIUM AND HYDROCHLOROTHIAZIDE [Concomitant]
     Route: 048
  4. LIPITOR [Concomitant]
     Dosage: 10 MG
     Route: 048
  5. PRADAXA [Suspect]
     Indication: ATRIAL FIBRILLATION
     Dosage: 220 MG
     Route: 048
     Dates: end: 20120530

REACTIONS (2)
  - COLITIS ISCHAEMIC [None]
  - MELAENA [None]
